FAERS Safety Report 18176988 (Version 5)
Quarter: 2020Q4

REPORT INFORMATION
  Report Type: Spontaneous
  Country: PR (occurrence: PR)
  Receive Date: 20200820
  Receipt Date: 20201124
  Transmission Date: 20210113
  Serious: No
  Sender: FDA-Public Use
  Company Number: PR-PFIZER INC-2020080626

PATIENT
  Age: 34 Year
  Sex: Male
  Weight: 79.38 kg

DRUGS (5)
  1. CHANTIX [Suspect]
     Active Substance: VARENICLINE TARTRATE
     Dosage: 0.5 MG, 2X/DAY (MORNING AND EVENING)
     Dates: start: 202003
  2. CHANTIX [Suspect]
     Active Substance: VARENICLINE TARTRATE
     Dosage: 2 DF, 2X/DAY (2 TABLETS IN THE MORNING AND 2 AT NIGHT)
  3. CHANTIX [Suspect]
     Active Substance: VARENICLINE TARTRATE
     Indication: SMOKING CESSATION THERAPY
     Dosage: 0.5 MG
  4. CHANTIX [Suspect]
     Active Substance: VARENICLINE TARTRATE
     Dosage: 1 MG, 2X/DAY (MORNING AND AFTERNOON)
  5. CHANTIX [Suspect]
     Active Substance: VARENICLINE TARTRATE
     Dosage: 1 MG, 2X/DAY (TWO 0.5 MG IN THE MORNING AND TWO 0.5 MG IN THE EVENING)

REACTIONS (6)
  - Circumstance or information capable of leading to medication error [Unknown]
  - Product dispensing error [Unknown]
  - Feeling abnormal [Unknown]
  - Tobacco user [Unknown]
  - Intentional product misuse [Unknown]
  - Intentional product use issue [Unknown]
